FAERS Safety Report 11626543 (Version 2)
Quarter: 2015Q4

REPORT INFORMATION
  Report Type: Spontaneous
  Country: US (occurrence: US)
  Receive Date: 20151013
  Receipt Date: 20151120
  Transmission Date: 20160304
  Serious: No
  Sender: FDA-Public Use
  Company Number: US-TEVA-598340USA

PATIENT
  Sex: Male

DRUGS (2)
  1. COPAXONE [Suspect]
     Active Substance: GLATIRAMER ACETATE
     Dosage: 17.1429 MILLIGRAM DAILY;
     Route: 065
     Dates: start: 20150113
  2. MULTI-VITAMIN WITH IRON [Concomitant]
     Route: 065

REACTIONS (1)
  - Injection site erythema [Not Recovered/Not Resolved]
